FAERS Safety Report 4583765-8 (Version None)
Quarter: 2005Q1

REPORT INFORMATION
  Report Type: 
  Country: None (occurrence: None)
  Receive Date: 20050211
  Receipt Date: 20050204
  Transmission Date: 20050727
  Serious: Yes (Hospitalization)
  Sender: FDA-Public Use
  Company Number: KII-2005-0015089

PATIENT
  Age: 49 Year
  Sex: Male

DRUGS (2)
  1. OXYCONTIN [Suspect]
     Dosage: ORAL
     Route: 048
  2. ACETAMINOPHEN [Suspect]

REACTIONS (12)
  - ALANINE AMINOTRANSFERASE ABNORMAL [None]
  - AMMONIA ABNORMAL [None]
  - ASPARTATE AMINOTRANSFERASE ABNORMAL [None]
  - BLOOD CREATININE ABNORMAL [None]
  - BLOOD GLUCOSE FLUCTUATION [None]
  - BLOOD POTASSIUM ABNORMAL [None]
  - BRAIN SCAN ABNORMAL [None]
  - CYANOSIS [None]
  - DELIRIUM [None]
  - HYPOTENSION [None]
  - MENTAL STATUS CHANGES [None]
  - OVERDOSE [None]
